FAERS Safety Report 24979573 (Version 1)
Quarter: 2025Q1

REPORT INFORMATION
  Report Type: Spontaneous
  Country: IE (occurrence: IE)
  Receive Date: 20250218
  Receipt Date: 20250218
  Transmission Date: 20250409
  Serious: Yes (Life-Threatening, Other)
  Sender: RANBAXY
  Company Number: IE-HPRA-2023-108805

PATIENT
  Age: 53 Year
  Sex: Male

DRUGS (1)
  1. PREGABALIN [Suspect]
     Active Substance: PREGABALIN
     Indication: Product used for unknown indication
     Route: 048
     Dates: start: 2023

REACTIONS (5)
  - Drug abuse [Unknown]
  - Overdose [Unknown]
  - Prescription drug used without a prescription [Unknown]
  - Loss of consciousness [Recovered/Resolved]
  - Euphoric mood [Unknown]

NARRATIVE: CASE EVENT DATE: 20231015
